FAERS Safety Report 8080129-X (Version None)
Quarter: 2012Q1

REPORT INFORMATION
  Report Type: 
  Country: None (occurrence: None)
  Receive Date: 20120129
  Receipt Date: 20111029
  Transmission Date: 20120608
  Serious: No
  Sender: FDA-Public Use
  Company Number: US-ABBOTT-11P-163-0869568-00

PATIENT
  Age: 25 Year
  Sex: Female

DRUGS (7)
  1. AZATHIOPRINE [Concomitant]
     Indication: PRODUCT USED FOR UNKNOWN INDICATION
  2. TRI-SPRINTEC BCP [Concomitant]
     Indication: PRODUCT USED FOR UNKNOWN INDICATION
  3. ANTIDEPRESSANT [Concomitant]
     Indication: CROHN'S DISEASE
  4. SERTRALINE HYDROCHLORIDE [Concomitant]
     Indication: PRODUCT USED FOR UNKNOWN INDICATION
  5. LIALDA [Concomitant]
     Indication: PRODUCT USED FOR UNKNOWN INDICATION
  6. HUMIRA [Suspect]
     Indication: CROHN'S DISEASE
     Dates: start: 20111011
  7. HUMIRA [Suspect]

REACTIONS (1)
  - ABDOMINAL PAIN [None]
